FAERS Safety Report 5776951-2 (Version None)
Quarter: 2008Q2

REPORT INFORMATION
  Report Type: 
  Country: None (occurrence: None)
  Receive Date: 20080618
  Receipt Date: 20080408
  Transmission Date: 20081010
  Serious: No
  Sender: FDA-Public Use
  Company Number: US-ASTRAZENECA-2008UW07162

PATIENT
  Age: 76 Year
  Sex: Female
  Weight: 48.1 kg

DRUGS (4)
  1. SYMBICORT [Suspect]
     Indication: CHRONIC OBSTRUCTIVE PULMONARY DISEASE
     Dosage: 80/4.5 UG - 1 PUFF BID
     Route: 055
     Dates: start: 20080201
  2. SPIRIVA [Concomitant]
     Dosage: 1X DAILY
  3. ALBUTEROL [Concomitant]
  4. VITAMINS [Concomitant]

REACTIONS (3)
  - CHEST PAIN [None]
  - NERVOUSNESS [None]
  - TREMOR [None]
